FAERS Safety Report 12648782 (Version 3)
Quarter: 2016Q3

REPORT INFORMATION
  Report Type: Spontaneous
  Country: US (occurrence: US)
  Receive Date: 20160812
  Receipt Date: 20160829
  Transmission Date: 20161109
  Serious: No
  Sender: FDA-Public Use
  Company Number: US-PFIZER INC-2016374117

PATIENT
  Age: 67 Year
  Sex: Male
  Weight: 64 kg

DRUGS (4)
  1. ONDANSETRON [Concomitant]
     Active Substance: ONDANSETRON
     Dosage: 4 MG, UNK
  2. BUTORPHANOL [Concomitant]
     Active Substance: BUTORPHANOL
     Dosage: 10 MG/ML, UNK
  3. INDOMETHACIN. [Concomitant]
     Active Substance: INDOMETHACIN
     Dosage: 50 MG, UNK
  4. LYRICA [Suspect]
     Active Substance: PREGABALIN
     Indication: HEADACHE
     Dosage: 75 MG, 2X/DAY; TWO 75MG A DAY; ONE AT LUNCH AND AT BEDTIME
     Dates: start: 20160707

REACTIONS (4)
  - Sexual dysfunction [Unknown]
  - Product use issue [Not Recovered/Not Resolved]
  - Pre-existing condition improved [Unknown]
  - Therapeutic response unexpected [Not Recovered/Not Resolved]
